FAERS Safety Report 7883186-6 (Version None)
Quarter: 2011Q4

REPORT INFORMATION
  Report Type: 
  Country: None (occurrence: None)
  Receive Date: 20111101
  Receipt Date: 20111101
  Transmission Date: 20120403
  Serious: Yes (Life-Threatening, Hospitalization)
  Sender: FDA-Public Use
  Company Number: None

PATIENT
  Age: 60 Year
  Sex: Male
  Weight: 110 kg

DRUGS (2)
  1. MOXIFLOXACIN [Suspect]
     Indication: SURGERY
     Dosage: ML
     Dates: start: 20110418, end: 20110422
  2. MOXIFLOXACIN [Suspect]
     Indication: SURGERY
     Dosage: ML
     Dates: start: 20110418, end: 20110422

REACTIONS (2)
  - ANAPHYLACTIC REACTION [None]
  - NO REACTION ON PREVIOUS EXPOSURE TO DRUG [None]
